FAERS Safety Report 6998754-3 (Version None)
Quarter: 2010Q3

REPORT INFORMATION
  Report Type: 
  Country: None (occurrence: None)
  Receive Date: 20100920
  Receipt Date: 20100111
  Transmission Date: 20110219
  Serious: No
  Sender: FDA-Public Use
  Company Number: US-ASTRAZENECA-2010SE01112

PATIENT
  Age: 45 Year
  Sex: Female

DRUGS (2)
  1. SEROQUEL [Suspect]
     Route: 048
     Dates: start: 20091207, end: 20091212
  2. PLAQUENIL [Suspect]

REACTIONS (3)
  - ALTERED STATE OF CONSCIOUSNESS [None]
  - INCOHERENT [None]
  - WRONG DRUG ADMINISTERED [None]
